FAERS Safety Report 9966641 (Version 1)
Quarter: 2014Q1

REPORT INFORMATION
  Report Type: Report from Study
  Country: US (occurrence: US)
  Receive Date: 20140305
  Receipt Date: 20140305
  Transmission Date: 20141002
  Serious: No
  Sender: FDA-Public Use
  Company Number: US-ABBVIE-13P-163-1122816-00

PATIENT
  Age: 50 Year
  Sex: Female

DRUGS (2)
  1. HUMIRA [Suspect]
     Dosage: DAY 1
     Dates: start: 20130705, end: 20130705
  2. HUMIRA [Suspect]
     Dosage: DAY 1

REACTIONS (1)
  - Injection site pain [Recovered/Resolved]
